FAERS Safety Report 12059826 (Version 1)
Quarter: 2016Q1

REPORT INFORMATION
  Report Type: Spontaneous
  Country: US (occurrence: None)
  Receive Date: 20160209
  Receipt Date: 20160209
  Transmission Date: 20160526
  Serious: Yes (Hospitalization)
  Sender: FDA-Public Use
  Company Number: None

PATIENT
  Age: 79 Year
  Sex: Male
  Weight: 73.48 kg

DRUGS (1)
  1. FLECANIDE 50 MG [Suspect]
     Active Substance: FLECAINIDE
     Indication: ARRHYTHMIA PROPHYLAXIS
     Dosage: 1 PILL
     Route: 048
     Dates: start: 20160102, end: 20160108

REACTIONS (1)
  - Paralysis [None]

NARRATIVE: CASE EVENT DATE: 20160112
